FAERS Safety Report 17350816 (Version 1)
Quarter: 2020Q1

REPORT INFORMATION
  Report Type: Spontaneous
  Country: ES (occurrence: ES)
  Receive Date: 20200130
  Receipt Date: 20200130
  Transmission Date: 20200409
  Serious: Yes (Other)
  Sender: FDA-Public Use
  Company Number: ES-AUROBINDO-AUR-APL-2020-004428

PATIENT
  Age: 62 Year
  Sex: Male
  Weight: 79 kg

DRUGS (8)
  1. ONDANSETRON [Suspect]
     Active Substance: ONDANSETRON
     Indication: NAUSEA
     Dosage: 4 MILLIGRAM, 1 TOTAL
     Route: 042
     Dates: start: 20190624, end: 20190624
  2. PROPOFOL. [Concomitant]
     Active Substance: PROPOFOL
     Indication: ANAESTHESIA
     Dosage: 120 MILLIGRAM, 1 TOTAL
     Route: 042
     Dates: start: 20190624, end: 20190624
  3. METAMIZOLE [Concomitant]
     Active Substance: METAMIZOLE
     Indication: PAIN
     Dosage: 2 GRAM, 1 TOTAL
     Route: 042
     Dates: start: 20190624, end: 20190624
  4. MANITOL [Concomitant]
     Active Substance: MANNITOL
     Indication: POLYURIA
     Dosage: 50 MILLIGRAM, 1 TOTAL
     Route: 042
     Dates: start: 20190624, end: 20190624
  5. FENTANEST [Concomitant]
     Active Substance: FENTANYL CITRATE
     Indication: ANAESTHESIA
     Dosage: 200 MICROGRAM 1 TOTAL
     Route: 042
     Dates: start: 20190624, end: 20190624
  6. SUGAMMADEX SODIUM [Suspect]
     Active Substance: SUGAMMADEX SODIUM
     Indication: NEUROMUSCULAR BLOCKADE REVERSAL
     Dosage: 200 MILLIGRAM, 1 TOTAL
     Route: 040
     Dates: start: 20190624, end: 20190624
  7. ROCURONIUM BROMIDE. [Concomitant]
     Active Substance: ROCURONIUM BROMIDE
     Indication: NEUROMUSCULAR BLOCKADE
     Dosage: 60 MILLIGRAM, 1 TOTAL
     Route: 042
     Dates: start: 20190624, end: 20190624
  8. METHYLPREDNISOLONE. [Concomitant]
     Active Substance: METHYLPREDNISOLONE
     Indication: PROPHYLAXIS AGAINST TRANSPLANT REJECTION
     Dosage: 500 MILLIGRAM, 1 TOTAL
     Route: 042
     Dates: start: 20190624, end: 20190624

REACTIONS (1)
  - Anaphylactic shock [Recovered/Resolved]

NARRATIVE: CASE EVENT DATE: 20190624
